FAERS Safety Report 9179720 (Version 1)
Quarter: 2013Q1

REPORT INFORMATION
  Report Type: Spontaneous
  Country: US (occurrence: US)
  Receive Date: 20130321
  Receipt Date: 20130321
  Transmission Date: 20140127
  Serious: Yes (Hospitalization, Other)
  Sender: FDA-Public Use
  Company Number: US-ALLERGAN-1303835US

PATIENT
  Age: 77 Year
  Sex: Male

DRUGS (1)
  1. LUMIGAN? 0.01% [Suspect]
     Indication: PRODUCT USED FOR UNKNOWN INDICATION
     Dosage: UNK
     Route: 047
     Dates: start: 2012

REACTIONS (3)
  - Deafness [Unknown]
  - Neuropathy peripheral [Unknown]
  - Blindness [Unknown]
